FAERS Safety Report 10186489 (Version 3)
Quarter: 2014Q3

REPORT INFORMATION
  Report Type: Spontaneous
  Country: IT (occurrence: IT)
  Receive Date: 20140521
  Receipt Date: 20140730
  Transmission Date: 20150326
  Serious: Yes (Death, Other)
  Sender: FDA-Public Use
  Company Number: IT-TEVA-477124ISR

PATIENT
  Age: 72 Year
  Sex: Female
  Weight: 100 kg

DRUGS (2)
  1. CISPLATINO TEVA ITALIA [Suspect]
     Active Substance: CISPLATIN
     Indication: LUNG NEOPLASM MALIGNANT
     Dosage: 110 MILLIGRAM DAILY;
     Route: 042
     Dates: start: 20140326, end: 20140326
  2. ALIMTA [Suspect]
     Active Substance: PEMETREXED DISODIUM
     Indication: LUNG NEOPLASM MALIGNANT
     Dosage: 750 MILLIGRAM DAILY;
     Route: 042
     Dates: start: 20140326, end: 20140326

REACTIONS (9)
  - Thrombocytopenia [Fatal]
  - Sopor [Not Recovered/Not Resolved]
  - Febrile neutropenia [Fatal]
  - Dehydration [Not Recovered/Not Resolved]
  - Anuria [Recovered/Resolved]
  - Renal failure acute [Fatal]
  - Hypotension [Not Recovered/Not Resolved]
  - Melaena [Not Recovered/Not Resolved]
  - Leukopenia [Fatal]

NARRATIVE: CASE EVENT DATE: 20140404
